FAERS Safety Report 16328740 (Version 1)
Quarter: 2019Q2

REPORT INFORMATION
  Report Type: Report from Study
  Country: BR (occurrence: BR)
  Receive Date: 20190519
  Receipt Date: 20190519
  Transmission Date: 20190711
  Serious: Yes (Hospitalization, Disabling, Other)
  Sender: FDA-Public Use
  Company Number: BR-UCBSA-2019020061

PATIENT
  Age: 48 Year
  Sex: Female
  Weight: 100 kg

DRUGS (1)
  1. CERTOLIZUMAB PEGOL [Suspect]
     Active Substance: CERTOLIZUMAB PEGOL
     Indication: RHEUMATOID ARTHRITIS
     Dosage: 400 MILLIGRAM, EV 4 WEEKS
     Route: 058
     Dates: start: 2018

REACTIONS (5)
  - Hypertension [Unknown]
  - Diabetes mellitus [Unknown]
  - Hypersensitivity [Not Recovered/Not Resolved]
  - Visual impairment [Not Recovered/Not Resolved]
  - Gait inability [Recovering/Resolving]

NARRATIVE: CASE EVENT DATE: 201902
